FAERS Safety Report 13713439 (Version 1)
Quarter: 2017Q3

REPORT INFORMATION
  Report Type: Spontaneous
  Country: US (occurrence: US)
  Receive Date: 20170704
  Receipt Date: 20170704
  Transmission Date: 20171127
  Serious: Yes (Death)
  Sender: FDA-Public Use
  Company Number: US-SHIRE-US201000100

PATIENT

DRUGS (1)
  1. 405 (LANTHANUM CARBONATE) [Suspect]
     Active Substance: LANTHANUM CARBONATE
     Indication: COLITIS ULCERATIVE
     Dosage: 50 MG, QOD
     Route: 048
     Dates: start: 20091130, end: 20091205

REACTIONS (1)
  - Rash [Fatal]

NARRATIVE: CASE EVENT DATE: 20100109
